FAERS Safety Report 4948816-7 (Version None)
Quarter: 2006Q1

REPORT INFORMATION
  Report Type: 
  Country: None (occurrence: None)
  Receive Date: 20060321
  Receipt Date: 20060309
  Transmission Date: 20060701
  Serious: Yes (Hospitalization, Other)
  Sender: FDA-Public Use
  Company Number: US-JNJFOC-20031100788

PATIENT
  Sex: Male
  Weight: 80.29 kg

DRUGS (32)
  1. REMICADE [Suspect]
     Route: 042
  2. REMICADE [Suspect]
     Route: 042
  3. REMICADE [Suspect]
     Indication: RHEUMATOID ARTHRITIS
     Route: 042
  4. MORPHINE [Suspect]
     Indication: PAIN
  5. PHENERGAN HCL [Suspect]
     Indication: DRUG USE FOR UNKNOWN INDICATION
  6. OXYCONTIN [Suspect]
     Indication: PAIN
  7. LIPITOR [Concomitant]
  8. MIACALCIN [Concomitant]
  9. BUMEX [Concomitant]
  10. OCEAN NASAL SPRAY [Concomitant]
  11. FOLIC ACID [Concomitant]
  12. LOTENSIN [Concomitant]
  13. FLOMAX [Concomitant]
  14. OXYCONTIN [Concomitant]
  15. NORVASC [Concomitant]
  16. HYDROCODONE [Concomitant]
  17. PREDNISONE [Concomitant]
  18. CALTRATE [Concomitant]
  19. PLAQUENIL [Concomitant]
  20. MAGIC MOUTH WASH [Concomitant]
  21. MECLIZINE [Concomitant]
  22. FLOMAX [Concomitant]
  23. ALLEGRA [Concomitant]
  24. FOLIC ACID [Concomitant]
  25. CALTRATE [Concomitant]
  26. NEOSPORIN [Concomitant]
  27. NEOSPORIN [Concomitant]
  28. NEOSPORIN [Concomitant]
  29. VIOXX [Concomitant]
  30. CELEBREX [Concomitant]
  31. MOTRIN [Concomitant]
  32. PREDNISONE [Concomitant]

REACTIONS (23)
  - ASPIRATION [None]
  - BACK PAIN [None]
  - CANDIDURIA [None]
  - CHEST PAIN [None]
  - COMPRESSION FRACTURE [None]
  - DEEP VEIN THROMBOSIS [None]
  - DIARRHOEA [None]
  - DIZZINESS [None]
  - DYSPHAGIA [None]
  - GASTRITIS [None]
  - HELICOBACTER INFECTION [None]
  - HYPERTENSION [None]
  - IMPAIRED HEALING [None]
  - JOINT DISLOCATION [None]
  - LUNG INFILTRATION [None]
  - PLEURAL EFFUSION [None]
  - PRURITUS [None]
  - RASH [None]
  - SKIN DISORDER [None]
  - STOMATITIS [None]
  - TUBERCULOSIS [None]
  - UPPER RESPIRATORY TRACT INFECTION [None]
  - URINARY TRACT INFECTION [None]
